FAERS Safety Report 4588625-4 (Version None)
Quarter: 2005Q1

REPORT INFORMATION
  Report Type: 
  Country: None (occurrence: None)
  Receive Date: 20050222
  Receipt Date: 20050218
  Transmission Date: 20050727
  Serious: Yes (Death)
  Sender: FDA-Public Use
  Company Number: PHEH2005US02200

PATIENT
  Age: 40 Year
  Sex: Female

DRUGS (8)
  1. CLOZARIL [Suspect]
     Indication: SCHIZOAFFECTIVE DISORDER
     Dosage: 400 MG, QD
     Route: 048
     Dates: start: 20000101
  2. ABILIFY [Concomitant]
     Dosage: 30 MG, QD
  3. LAMOTRIGINE [Concomitant]
     Dosage: 100 MG, QHS
  4. RISPERDAL [Interacting]
     Dosage: 3 MG, QD
  5. PAXIL [Interacting]
     Dosage: 215 MG, QD
  6. ARTANE [Concomitant]
     Dosage: UNK MG, QD
  7. DEPAKOTE [Concomitant]
     Dosage: 1500 MG, QD
  8. KLONOPIN [Interacting]
     Dosage: 1 MG, QD

REACTIONS (3)
  - DRUG LEVEL INCREASED [None]
  - DRUG TOXICITY [None]
  - PULMONARY OEDEMA [None]
